FAERS Safety Report 17909157 (Version 1)
Quarter: 2020Q2

REPORT INFORMATION
  Report Type: Spontaneous
  Country: US (occurrence: US)
  Receive Date: 20200618
  Receipt Date: 20200618
  Transmission Date: 20200714
  Serious: No
  Sender: FDA-Public Use
  Company Number: US-AMAG PHARMACEUTICALS, INC.-AMAG202001940

PATIENT
  Age: 41 Year
  Sex: Female
  Weight: 74.91 kg

DRUGS (5)
  1. SYNTHROID [Concomitant]
     Active Substance: LEVOTHYROXINE SODIUM
     Indication: THYROID DISORDER
     Route: 048
  2. VYLEESI [Suspect]
     Active Substance: BREMELANOTIDE ACETATE
     Dosage: NDC#:  64011-701-01
     Route: 058
  3. T3 DRUG [Concomitant]
     Indication: THYROID DISORDER
     Dosage: THE PATIENT STARTED SHE TAKES ONE 10MCG PILL EVERYDAY. SHE STARTED TAKIN GIT ABOUT 6MONTHS AGO
     Route: 048
  4. VITAMINS [Concomitant]
     Active Substance: VITAMINS
     Indication: SUPPLEMENTATION THERAPY
  5. VYLEESI [Suspect]
     Active Substance: BREMELANOTIDE ACETATE
     Indication: LIBIDO DECREASED
     Route: 058

REACTIONS (5)
  - Lethargy [Not Recovered/Not Resolved]
  - Nausea [Not Recovered/Not Resolved]
  - Drug ineffective [Unknown]
  - Injection site pain [Not Recovered/Not Resolved]
  - Injection site erythema [Not Recovered/Not Resolved]
